FAERS Safety Report 15399407 (Version 1)
Quarter: 2018Q3

REPORT INFORMATION
  Report Type: Spontaneous
  Country: US (occurrence: US)
  Receive Date: 20180918
  Receipt Date: 20180918
  Transmission Date: 20181010
  Serious: No
  Sender: FDA-Public Use
  Company Number: US-AMGEN-USASP2018053464

PATIENT
  Sex: Female
  Weight: 77.1 kg

DRUGS (4)
  1. NEUPOGEN [Suspect]
     Active Substance: FILGRASTIM
     Indication: THROMBOCYTOPENIA
     Dosage: 380 MUG, UNK
     Route: 065
     Dates: start: 20180410, end: 201804
  2. NEUPOGEN [Suspect]
     Active Substance: FILGRASTIM
     Dosage: 780 MUG, UNK
     Route: 065
     Dates: start: 201804
  3. NEUPOGEN [Suspect]
     Active Substance: FILGRASTIM
     Indication: PNEUMONIA
     Dosage: 480 MUG, UNK
     Route: 065
     Dates: start: 201804, end: 201804
  4. NEUPOGEN [Suspect]
     Active Substance: FILGRASTIM
     Indication: SEPSIS
     Dosage: 600 MUG, UNK
     Route: 065
     Dates: start: 201804, end: 201804

REACTIONS (1)
  - Off label use [Unknown]

NARRATIVE: CASE EVENT DATE: 20180410
